FAERS Safety Report 18432368 (Version 2)
Quarter: 2021Q1

REPORT INFORMATION
  Report Type: Report from Study
  Country: KR (occurrence: KR)
  Receive Date: 20201027
  Receipt Date: 20210210
  Transmission Date: 20210419
  Serious: Yes (Hospitalization)
  Sender: FDA-Public Use
  Company Number: KR-EISAI MEDICAL RESEARCH-EC-2020-079681

PATIENT
  Sex: Male

DRUGS (12)
  1. SYNTHYROXINE [Concomitant]
     Active Substance: LEVOTHYROXINE SODIUM
     Indication: HYPOTHYROIDISM
     Route: 048
     Dates: start: 20200730, end: 20201125
  2. EZETROL [Concomitant]
     Active Substance: EZETIMIBE
     Indication: DYSLIPIDAEMIA
     Route: 048
     Dates: start: 20200821, end: 20201125
  3. NEURONTIN [Concomitant]
     Active Substance: GABAPENTIN
     Indication: NEUROPATHY PERIPHERAL
     Dosage: 3 CAPSULES
     Route: 048
     Dates: start: 20200821, end: 20201125
  4. TEGRETOL [Concomitant]
     Active Substance: CARBAMAZEPINE
     Indication: NEUROPATHY PERIPHERAL
     Route: 048
     Dates: start: 20200821, end: 20201125
  5. LIPITOR [Concomitant]
     Active Substance: ATORVASTATIN CALCIUM
     Indication: ACUTE MYOCARDIAL INFARCTION
     Route: 048
     Dates: start: 20200821, end: 20201125
  6. VIREAD [Concomitant]
     Active Substance: TENOFOVIR DISOPROXIL FUMARATE
     Indication: CHRONIC HEPATITIS B
     Dosage: 1 TAB
     Route: 048
     Dates: start: 20200730
  7. LENVIMA [Suspect]
     Active Substance: LENVATINIB
     Indication: HEPATOCELLULAR CARCINOMA
     Route: 048
     Dates: start: 20200730, end: 20201018
  8. PLETAAL [Concomitant]
     Active Substance: CILOSTAZOL
     Indication: ACUTE MYOCARDIAL INFARCTION
     Dosage: 2 CAPSULES
     Route: 048
     Dates: start: 20200730, end: 20201125
  9. LENVIMA [Suspect]
     Active Substance: LENVATINIB
     Route: 048
     Dates: start: 20201029, end: 20201125
  10. TARGIN [Concomitant]
     Active Substance: NALOXONE HYDROCHLORIDE\OXYCODONE HYDROCHLORIDE
     Indication: PROPHYLAXIS
     Dosage: 2 TABS 5/2.5MG
     Route: 048
     Dates: start: 20200730, end: 20201125
  11. TEPRA [Concomitant]
     Indication: VARICES OESOPHAGEAL
     Route: 048
     Dates: start: 20200730, end: 20201125
  12. MEGACE F [Concomitant]
     Indication: PROPHYLAXIS
     Route: 048
     Dates: start: 20200730, end: 20201125

REACTIONS (2)
  - Oesophageal varices haemorrhage [Recovered/Resolved]
  - Neutropenia [Recovered/Resolved]

NARRATIVE: CASE EVENT DATE: 20200806
